FAERS Safety Report 26199801 (Version 1)
Quarter: 2025Q4

REPORT INFORMATION
  Report Type: Spontaneous
  Country: US (occurrence: US)
  Receive Date: 20251225
  Receipt Date: 20251225
  Transmission Date: 20260118
  Serious: Yes (Other)
  Sender: AMGEN
  Company Number: US-AMGEN-USASP2025248504

PATIENT
  Age: 50 Year
  Sex: Male

DRUGS (7)
  1. PREDNISONE [Suspect]
     Active Substance: PREDNISONE
     Indication: Pulmonary sarcoidosis
     Dosage: 60 MILLIGRAM
     Route: 065
  2. PREDNISONE [Suspect]
     Active Substance: PREDNISONE
     Dosage: 15 MILLIGRAM
     Route: 065
  3. ADALIMUMAB [Suspect]
     Active Substance: ADALIMUMAB
     Indication: Pulmonary sarcoidosis
     Dosage: UNK
     Route: 065
  4. METHOTREXATE [Concomitant]
     Active Substance: METHOTREXATE
  5. HYDROXYCHLOROQUINE [Concomitant]
     Active Substance: HYDROXYCHLOROQUINE
  6. REMICADE [Concomitant]
     Active Substance: INFLIXIMAB
  7. AZATHIOPRINE [Concomitant]
     Active Substance: AZATHIOPRINE

REACTIONS (5)
  - Diabetes mellitus [Unknown]
  - Bipolar disorder [Unknown]
  - Renal impairment [Unknown]
  - Drug ineffective [Unknown]
  - Mood altered [Unknown]
